FAERS Safety Report 12282975 (Version 4)
Quarter: 2016Q2

REPORT INFORMATION
  Report Type: Spontaneous
  Country: US (occurrence: US)
  Receive Date: 20160419
  Receipt Date: 20160613
  Transmission Date: 20160815
  Serious: Yes (Hospitalization, Other)
  Sender: FDA-Public Use
  Company Number: US-PFIZER INC-2016221780

PATIENT
  Age: 52 Year
  Sex: Female

DRUGS (2)
  1. CHANTIX [Suspect]
     Active Substance: VARENICLINE TARTRATE
     Indication: SMOKING CESSATION THERAPY
     Dosage: UNK
     Dates: start: 2009
  2. CHANTIX [Suspect]
     Active Substance: VARENICLINE TARTRATE
     Dosage: 5 MG, 2X/DAY (5MG AM, 5MG PM)
     Dates: start: 20160523

REACTIONS (2)
  - Breast cancer [Recovered/Resolved]
  - Radiation skin injury [Not Recovered/Not Resolved]

NARRATIVE: CASE EVENT DATE: 201403
